FAERS Safety Report 6490931-3 (Version None)
Quarter: 2009Q4

REPORT INFORMATION
  Report Type: 
  Country: None (occurrence: None)
  Receive Date: 20091208
  Receipt Date: 20091201
  Transmission Date: 20100525
  Serious: Yes (Hospitalization)
  Sender: FDA-Public Use
  Company Number: 2009SP039664

PATIENT
  Age: 45 Year
  Sex: Male

DRUGS (2)
  1. RIBAVIRIN [Suspect]
     Indication: HEPATITIS C
     Dosage: PO
     Route: 048
     Dates: start: 20070101
  2. PEGASYS [Suspect]
     Indication: HEPATITIS C
     Dates: start: 20070101

REACTIONS (3)
  - BACK PAIN [None]
  - ENCEPHALITIS [None]
  - GASTRIC HAEMORRHAGE [None]
